FAERS Safety Report 23592986 (Version 1)
Quarter: 2024Q1

REPORT INFORMATION
  Report Type: Spontaneous
  Country: NL (occurrence: NL)
  Receive Date: 20240304
  Receipt Date: 20240304
  Transmission Date: 20240410
  Serious: Yes (Hospitalization, Other)
  Sender: FDA-Public Use
  Company Number: None

PATIENT
  Age: 70 Year
  Sex: Female
  Weight: 52.4 kg

DRUGS (18)
  1. LORAZEPAM [Suspect]
     Active Substance: LORAZEPAM
     Indication: Restlessness
     Dosage: 1 PIECE 3 TIMES A DAY?LORAZEPAM TABLET 0,5MG / BRAND NAME NOT SPECIFIED
     Route: 065
     Dates: start: 20231208
  2. MORPHINE [Suspect]
     Active Substance: MORPHINE
     Indication: Dyspnoea
     Dosage: IF NECESSARY, 5 MG 6 TIMES A DAY?MORPHINE DRINK 2MG/ML (SULFATE) / BRAND NAME NOT SPECIFIED
     Route: 065
     Dates: start: 20240217, end: 20240221
  3. CLOMIPRAMINE [Concomitant]
     Active Substance: CLOMIPRAMINE
     Indication: Product used for unknown indication
     Dosage: MODIFIED-RELEASE TABLET, 75 MG (MILLIGRAM)?CLOMIPRAMINE TABLETS ABOUT 75MG
     Route: 065
  4. CLOMIPRAMINE [Concomitant]
     Active Substance: CLOMIPRAMINE
     Route: 065
  5. CLOPIDOGREL [Concomitant]
     Active Substance: CLOPIDOGREL BISULFATE
     Indication: Product used for unknown indication
     Dosage: TABLET, 75 MG (MILLIGRAM)?CLOMIPRAMINE TABLETS ABOUT 75MG
     Route: 065
  6. PANTOPRAZOLE SODIUM [Concomitant]
     Active Substance: PANTOPRAZOLE SODIUM
     Indication: Product used for unknown indication
     Dosage: GASTRO-RESISTANT TABLET, 40 MG (MILLIGRAM)?PANTOPRAZOLE TABLET MSR 40MG
     Route: 065
  7. DAPAGLIFLOZIN [Concomitant]
     Active Substance: DAPAGLIFLOZIN
     Indication: Product used for unknown indication
     Dosage: TABLET, 10 MG (MILLIGRAM)?DAPAGLIFLOZINE TABLET 10MG / BRAND NAME NOT SPECIFIED
     Route: 065
  8. BUMETANIDE [Concomitant]
     Active Substance: BUMETANIDE
     Indication: Product used for unknown indication
     Dosage: INFUUS, 1 MG/MG (MILLIGRAM PER MILLIGRAM)?INFUSION OF BUMETANS
     Route: 065
  9. POLYETHYLENE GLYCOLS [Concomitant]
     Active Substance: POLYETHYLENE GLYCOLS
     Indication: Product used for unknown indication
     Dosage: POWDER FOR DRINK?MACROGOL/SALTS PDR V DRINK (MOVIC/MOLAX/LAXT/GEN) BRAND NAME NOT SPECIFIED.
     Route: 065
  10. EXEMESTANE [Concomitant]
     Active Substance: EXEMESTANE
     Indication: Product used for unknown indication
     Dosage: OMHULDE TABLET, 25 MG (MILLIGRAM)?EXEMESTAAN TABLET COATED 25MG / BRAND NAME NOT SPECIFIED
     Route: 065
  11. EZETIMIBE [Concomitant]
     Active Substance: EZETIMIBE
     Indication: Product used for unknown indication
     Dosage: TABLET, 10 MG (MILLIGRAM)?EZETIMIB TABLET 10MG / BRAND NAME NOT SPECIFIED
     Route: 065
  12. ASPIRIN [Concomitant]
     Active Substance: ASPIRIN
     Indication: Product used for unknown indication
     Dosage: TABLET, 80 MG (MILLIGRAM)?ACETYLSALICYLZUUR TABLET  80MG / BRAND NAME NOT SPECIFIED
     Route: 065
  13. NADROPARIN [Concomitant]
     Active Substance: NADROPARIN
     Indication: Product used for unknown indication
     Dosage: INJECTION FLUID, 9500 IU/ML (UNITS PER MILLILITER)
     Route: 065
  14. FULVESTRANT [Concomitant]
     Active Substance: FULVESTRANT
     Indication: Product used for unknown indication
     Dosage: INJECTION FLUID, 50 MG/ML (MILLIGRAM PER MILLILITER)
     Route: 065
  15. SPIRONOLACTONE [Concomitant]
     Active Substance: SPIRONOLACTONE
     Indication: Product used for unknown indication
     Dosage: TABLET, 25 MG (MILLIGRAM)
     Route: 065
  16. ATORVASTATIN [Concomitant]
     Active Substance: ATORVASTATIN
     Indication: Product used for unknown indication
     Dosage: TABLET, 40 MG (MILLIGRAM)?ATORVASTATINE TABLET 40MG / BRAND NAME NOT SPECIFIED
     Route: 065
  17. OLANZAPINE [Concomitant]
     Active Substance: OLANZAPINE
     Indication: Product used for unknown indication
     Dosage: 2.5MG TABLET
     Route: 065
  18. BISOPROLOL [Concomitant]
     Active Substance: BISOPROLOL\BISOPROLOL FUMARATE
     Indication: Product used for unknown indication
     Dosage: TABLET, 5 MG (MILLIGRAM)
     Route: 065

REACTIONS (8)
  - Apathy [Recovering/Resolving]
  - Fatigue [Recovering/Resolving]
  - Somnolence [Recovering/Resolving]
  - Loss of consciousness [Recovered/Resolved]
  - Presyncope [Recovered/Resolved]
  - Muscular weakness [Recovered/Resolved]
  - Diplopia [Recovered/Resolved]
  - Dizziness [Recovered/Resolved]
